FAERS Safety Report 13585304 (Version 4)
Quarter: 2017Q3

REPORT INFORMATION
  Report Type: Spontaneous
  Country: US (occurrence: US)
  Receive Date: 20170526
  Receipt Date: 20170925
  Transmission Date: 20171127
  Serious: Yes (Death, Hospitalization)
  Sender: FDA-Public Use
  Company Number: US-JNJFOC-20170524807

PATIENT
  Age: 44 Year
  Sex: Female

DRUGS (36)
  1. DOCUSATE W/SENNA ALEXANDRINA [Concomitant]
  2. DILAUDID [Concomitant]
     Active Substance: HYDROMORPHONE HYDROCHLORIDE
  3. ATOVAQUONE. [Concomitant]
     Active Substance: ATOVAQUONE
  4. DOCUSATE [Concomitant]
     Active Substance: DOCUSATE
  5. AMLODIPINE [Concomitant]
     Active Substance: AMLODIPINE BESYLATE
  6. ACYCLOVIR. [Concomitant]
     Active Substance: ACYCLOVIR
  7. BECLOMETHASONE [Concomitant]
     Active Substance: BECLOMETHASONE
  8. METFORMIN [Concomitant]
     Active Substance: METFORMIN HYDROCHLORIDE
  9. FOSAMAX [Concomitant]
     Active Substance: ALENDRONATE SODIUM
  10. IMBRUVICA [Suspect]
     Active Substance: IBRUTINIB
     Indication: ACUTE MYELOID LEUKAEMIA
     Route: 048
     Dates: end: 20170429
  11. LORAZEPAM. [Concomitant]
     Active Substance: LORAZEPAM
  12. MAALOX ANTACID [Concomitant]
     Active Substance: ALUMINUM HYDROXIDE\DIMETHICONE\MAGNESIUM HYDROXIDE
  13. VALTREX [Concomitant]
     Active Substance: VALACYCLOVIR HYDROCHLORIDE
  14. ZOFRAN [Concomitant]
     Active Substance: ONDANSETRON HYDROCHLORIDE
  15. PROCHLORPERAZINE. [Concomitant]
     Active Substance: PROCHLORPERAZINE
  16. PRAVASTATIN. [Concomitant]
     Active Substance: PRAVASTATIN
  17. TACROLIMUS. [Concomitant]
     Active Substance: TACROLIMUS
     Route: 061
  18. IMBRUVICA [Suspect]
     Active Substance: IBRUTINIB
     Indication: ACUTE MYELOID LEUKAEMIA
     Route: 048
     Dates: start: 20140602, end: 20170501
  19. CARVEDILOL. [Concomitant]
     Active Substance: CARVEDILOL
  20. NORGESTREL/ETHINYL ESTRADIOL [Concomitant]
     Active Substance: ETHINYL ESTRADIOL\NORGESTREL
  21. NOXAFIL [Concomitant]
     Active Substance: POSACONAZOLE
  22. CALCIUM [Concomitant]
     Active Substance: CALCIUM
  23. OXYCONTIN [Concomitant]
     Active Substance: OXYCODONE HYDROCHLORIDE
  24. GABAPENTIN. [Concomitant]
     Active Substance: GABAPENTIN
  25. MAGNESIUM [Concomitant]
     Active Substance: MAGNESIUM
  26. PANTOPRAZOLE [Concomitant]
     Active Substance: PANTOPRAZOLE
  27. KOFLEX [Concomitant]
     Active Substance: CEPHALEXIN
  28. CHOLECALCIFEROL [Concomitant]
     Active Substance: CHOLECALCIFEROL
  29. SENNA [Concomitant]
     Active Substance: SENNA LEAF\SENNOSIDES\SENNOSIDES A AND B
  30. INSULIN [Concomitant]
     Active Substance: INSULIN NOS
  31. LEVOFLOXACIN. [Concomitant]
     Active Substance: LEVOFLOXACIN
  32. URSODIOL. [Concomitant]
     Active Substance: URSODIOL
  33. PREDNISONE. [Suspect]
     Active Substance: PREDNISONE
     Indication: PRODUCT USED FOR UNKNOWN INDICATION
     Route: 065
     Dates: end: 20170429
  34. SIMETHICONE (DIMETHICONE) [Concomitant]
     Active Substance: DIMETHICONE
  35. XYLOCAINE [Concomitant]
     Active Substance: LIDOCAINE HYDROCHLORIDE
  36. MULTIVITAMINS [Concomitant]
     Active Substance: VITAMINS

REACTIONS (6)
  - Product use in unapproved indication [Unknown]
  - Septic shock [Fatal]
  - Pneumonia parainfluenzae viral [Not Recovered/Not Resolved]
  - Off label use [Unknown]
  - Acute respiratory distress syndrome [Fatal]
  - Pneumonia staphylococcal [Not Recovered/Not Resolved]

NARRATIVE: CASE EVENT DATE: 20140602
